FAERS Safety Report 23405717 (Version 1)
Quarter: 2024Q1

REPORT INFORMATION
  Report Type: Spontaneous
  Country: US (occurrence: US)
  Receive Date: 20240116
  Receipt Date: 20240116
  Transmission Date: 20240410
  Serious: No
  Sender: FDA-Public Use
  Company Number: US-ANIPHARMA-2023-US-005628

PATIENT
  Sex: 0

DRUGS (3)
  1. REGLAN [Suspect]
     Active Substance: METOCLOPRAMIDE HYDROCHLORIDE
     Indication: Headache
     Route: 065
  2. NURTEC ODT [Concomitant]
     Active Substance: RIMEGEPANT SULFATE
     Route: 065
  3. Unspecified preventative medications [Concomitant]

REACTIONS (3)
  - Drug ineffective [Unknown]
  - Off label use [Unknown]
  - Therapeutic response unexpected [Unknown]
